FAERS Safety Report 5975591-X (Version None)
Quarter: 2008Q4

REPORT INFORMATION
  Report Type: 
  Country: None (occurrence: None)
  Receive Date: 20081124
  Receipt Date: 20081118
  Transmission Date: 20090506
  Serious: Yes (Death, Hospitalization, Other)
  Sender: FDA-Public Use
  Company Number: WAES 0808FRA00030

PATIENT
  Age: 69 Year
  Sex: Male

DRUGS (5)
  1. CAP VORINOSTAT 100 MG [Suspect]
     Indication: MYELODYSPLASTIC SYNDROME
     Dosage: 400 MG/DAILY/PO
     Route: 048
     Dates: start: 20080724, end: 20080730
  2. CYTARABINE [Suspect]
     Indication: MYELODYSPLASTIC SYNDROME
     Dosage: 17 MG/DAILY/SC, 100 MG/DAILY/SC
     Route: 058
     Dates: start: 20080709, end: 20080711
  3. CYTARABINE [Suspect]
     Indication: MYELODYSPLASTIC SYNDROME
     Dosage: 17 MG/DAILY/SC, 100 MG/DAILY/SC
     Route: 058
     Dates: start: 20080712, end: 20080723
  4. ACETAMINOPHEN [Concomitant]
  5. OMEPRAZOLE [Concomitant]

REACTIONS (14)
  - ACCIDENTAL OVERDOSE [None]
  - ACUTE PULMONARY OEDEMA [None]
  - BONE MARROW FAILURE [None]
  - BRONCHOPNEUMONIA [None]
  - CARDIAC ARREST [None]
  - CARDIAC FAILURE [None]
  - DRUG DISPENSING ERROR [None]
  - HYPOXIA [None]
  - MUSCULOSKELETAL CHEST PAIN [None]
  - PNEUMONIA [None]
  - RENAL FAILURE ACUTE [None]
  - SEPSIS [None]
  - SEPTIC SHOCK [None]
  - URINARY RETENTION [None]
